FAERS Safety Report 7132653-1 (Version None)
Quarter: 2010Q4

REPORT INFORMATION
  Report Type: 
  Country: None (occurrence: None)
  Receive Date: 20101130
  Receipt Date: 20101130
  Transmission Date: 20110411
  Serious: No
  Sender: FDA-Public Use
  Company Number: None

PATIENT
  Age: 61 Year
  Sex: Female
  Weight: 112.4921 kg

DRUGS (2)
  1. BENZONATATE [Suspect]
     Indication: COUGH
     Dosage: 1 FILL 2X PO
     Route: 048
     Dates: start: 20101128, end: 20101128
  2. BENZONATATE [Suspect]
     Indication: SINUSITIS
     Dosage: 1 FILL 2X PO
     Route: 048
     Dates: start: 20101128, end: 20101128

REACTIONS (3)
  - COLD SWEAT [None]
  - HEADACHE [None]
  - UNEVALUABLE EVENT [None]
